FAERS Safety Report 15330381 (Version 2)
Quarter: 2019Q1

REPORT INFORMATION
  Report Type: Report from Study
  Country: US (occurrence: US)
  Receive Date: 20180829
  Receipt Date: 20190129
  Transmission Date: 20190417
  Serious: No
  Sender: FDA-Public Use
  Company Number: US-009507513-1808USA011238

PATIENT
  Sex: Female

DRUGS (1)
  1. PEMBROLIZUMAB. [Suspect]
     Active Substance: PEMBROLIZUMAB
     Indication: CERVIX CARCINOMA

REACTIONS (2)
  - Blood pressure abnormal [Unknown]
  - Product use in unapproved indication [Unknown]
